FAERS Safety Report 6400562-9 (Version None)
Quarter: 2009Q4

REPORT INFORMATION
  Report Type: 
  Country: None (occurrence: None)
  Receive Date: 20091013
  Receipt Date: 20091013
  Transmission Date: 20100525
  Serious: Yes (Life-Threatening, Other)
  Sender: FDA-Public Use
  Company Number: None

PATIENT
  Age: 24 Year
  Sex: Female
  Weight: 56.6996 kg

DRUGS (1)
  1. MINOCYCLINE 100 MG TABS GENERIC [Suspect]
     Indication: ACNE
     Dosage: 100 MG BID PO
     Route: 048

REACTIONS (9)
  - AGITATION [None]
  - DISTURBANCE IN ATTENTION [None]
  - FEELING ABNORMAL [None]
  - HOMICIDAL IDEATION [None]
  - IMPAIRED WORK ABILITY [None]
  - NERVOUSNESS [None]
  - SELF-INJURIOUS IDEATION [None]
  - THINKING ABNORMAL [None]
  - TREMOR [None]
